FAERS Safety Report 4863327-5 (Version None)
Quarter: 2005Q4

REPORT INFORMATION
  Report Type: 
  Country: None (occurrence: None)
  Receive Date: 20051219
  Receipt Date: 20051212
  Transmission Date: 20060501
  Serious: Yes (Death, Hospitalization, Other)
  Sender: FDA-Public Use
  Company Number: 2005-09-0221

PATIENT
  Age: 54 Year
  Sex: Male
  Weight: 53 kg

DRUGS (22)
  1. REBETOL [Suspect]
     Indication: HEPATITIS C
     Dosage: 800 MG QD ORAL
     Route: 048
     Dates: start: 20040605, end: 20040706
  2. REBETOL [Suspect]
     Indication: PROPHYLAXIS
     Dosage: 800 MG QD ORAL
     Route: 048
     Dates: start: 20040605, end: 20040706
  3. INTRON A [Suspect]
     Indication: HEPATITIS C
     Dosage: 6MU - 3MU*TIW INTRAMUSCULAR
     Route: 030
     Dates: start: 20040605, end: 20040706
  4. INTRON A [Suspect]
     Indication: PROPHYLAXIS
     Dosage: 6MU - 3MU*TIW INTRAMUSCULAR
     Route: 030
     Dates: start: 20040605, end: 20040706
  5. INTRON A [Suspect]
     Indication: HEPATITIS C
     Dosage: 6MU - 3MU*TIW INTRAMUSCULAR
     Route: 030
     Dates: start: 20040906, end: 20040906
  6. INTRON A [Suspect]
     Indication: PROPHYLAXIS
     Dosage: 6MU - 3MU*TIW INTRAMUSCULAR
     Route: 030
     Dates: start: 20040906, end: 20040906
  7. PROGRAF [Suspect]
     Indication: IMMUNOSUPPRESSION
     Dosage: 2.5*- 0.6 MCG INTRAVENOUS
     Route: 042
     Dates: start: 20040101, end: 20040101
  8. PROGRAF [Suspect]
     Indication: IMMUNOSUPPRESSION
     Dosage: 2.5*- 0.6 MCG INTRAVENOUS
     Route: 042
     Dates: start: 20040520, end: 20040101
  9. PROGRAF [Suspect]
     Indication: IMMUNOSUPPRESSION
     Dosage: 9-7* MG ORAL
     Route: 048
     Dates: start: 20040101, end: 20040101
  10. PROGRAF [Suspect]
     Indication: IMMUNOSUPPRESSION
     Dosage: 9-7* MG ORAL
     Route: 048
     Dates: start: 20040101, end: 20040808
  11. GANCICLOVIR [Suspect]
     Indication: CYTOMEGALOVIRUS ANTIGEN POSITIVE
     Dosage: 400 MG INTRAVENOUS
     Route: 042
     Dates: start: 20040701, end: 20040707
  12. MEDROL [Concomitant]
  13. MEDROL [Concomitant]
  14. SOLU-MEDROL [Concomitant]
  15. SOLU-MEDROL [Concomitant]
  16. LANSOPRAZOLE [Concomitant]
  17. URSO TABLETS [Concomitant]
  18. BUFFERIN [Concomitant]
  19. LASIX [Concomitant]
  20. FOSCAVIR (FOSCARNET) INJECTABLE SOLUTION [Concomitant]
  21. FOSCAVIR (FOSCARNET) INJECTABLE SOLUTION [Concomitant]
  22. NEORAL [Concomitant]

REACTIONS (8)
  - ANAEMIA [None]
  - CYTOMEGALOVIRUS ANTIGEN POSITIVE [None]
  - HAEMOLYSIS [None]
  - HEPATIC FAILURE [None]
  - HEPATITIS C [None]
  - POST PROCEDURAL HAEMORRHAGE [None]
  - THERAPY NON-RESPONDER [None]
  - THROMBOTIC MICROANGIOPATHY [None]
